FAERS Safety Report 9020553 (Version 1)
Quarter: 2013Q1

REPORT INFORMATION
  Report Type: Spontaneous
  Country: US (occurrence: US)
  Receive Date: 20130119
  Receipt Date: 20130119
  Transmission Date: 20140127
  Serious: No
  Sender: FDA-Public Use
  Company Number: US-ALLERGAN-1207445US

PATIENT
  Age: 63 Year
  Sex: Female

DRUGS (5)
  1. BOTOX? [Suspect]
     Indication: VIITH NERVE PARALYSIS
     Dosage: 35 UNITS, SINGLE
     Route: 030
     Dates: start: 20120518, end: 20120518
  2. BOTOX? [Suspect]
     Indication: FACIAL ASYMMETRY
  3. SYNTHROID [Concomitant]
     Indication: PRODUCT USED FOR UNKNOWN INDICATION
  4. RESTORIL                           /00054301/ [Concomitant]
     Indication: INSOMNIA
  5. BLOOD PRESSURE PILLS [Concomitant]
     Indication: HYPERTENSION

REACTIONS (4)
  - Wound [Recovered/Resolved]
  - Drug administered at inappropriate site [Unknown]
  - Muscular weakness [Unknown]
  - Drug ineffective [Unknown]
